FAERS Safety Report 15475845 (Version 4)
Quarter: 2019Q4

REPORT INFORMATION
  Report Type: Report from Study
  Country: US (occurrence: US)
  Receive Date: 20181009
  Receipt Date: 20191206
  Transmission Date: 20200122
  Serious: Yes (Other)
  Sender: FDA-Public Use
  Company Number: US-ROCHE-2193114

PATIENT
  Sex: Female
  Weight: 134.38 kg

DRUGS (2)
  1. OCREVUS [Suspect]
     Active Substance: OCRELIZUMAB
     Indication: RELAPSING-REMITTING MULTIPLE SCLEROSIS
     Dosage: SUBSEQUENT DOSE ON: 15/OCT/2018; 01/APR/2019, 13/OCT/2019
     Route: 065
     Dates: start: 20180327
  2. RITUXAN [Suspect]
     Active Substance: RITUXIMAB
     Indication: RELAPSING-REMITTING MULTIPLE SCLEROSIS
     Route: 065

REACTIONS (5)
  - Pain [Unknown]
  - Urinary tract infection [Not Recovered/Not Resolved]
  - Cholelithiasis [Unknown]
  - Intentional product use issue [Unknown]
  - Off label use [Unknown]
